FAERS Safety Report 9031468 (Version 1)
Quarter: 2013Q1

REPORT INFORMATION
  Report Type: Spontaneous
  Country: IT (occurrence: IT)
  Receive Date: 20130124
  Receipt Date: 20130124
  Transmission Date: 20140127
  Serious: Yes (Hospitalization)
  Sender: FDA-Public Use
  Company Number: IT-ROCHE-1182365

PATIENT
  Age: 45 Year
  Sex: Female

DRUGS (5)
  1. AVASTIN [Suspect]
     Indication: PRODUCT USED FOR UNKNOWN INDICATION
     Route: 042
     Dates: start: 20120726, end: 20120726
  2. CARBOPLATINO [Suspect]
     Indication: PRODUCT USED FOR UNKNOWN INDICATION
     Route: 042
     Dates: start: 20120726, end: 20120726
  3. PACLITAXEL [Suspect]
     Indication: PRODUCT USED FOR UNKNOWN INDICATION
     Route: 042
     Dates: start: 20120726, end: 20120726
  4. BINOCRIT [Concomitant]
     Dosage: 30000 IU/ 0.75 ML
     Route: 065
  5. TRIATEC [Concomitant]
     Route: 065

REACTIONS (2)
  - Hyperpyrexia [Unknown]
  - Nausea [Unknown]
